FAERS Safety Report 4767607-3 (Version None)
Quarter: 2005Q3

REPORT INFORMATION
  Report Type: 
  Country: None (occurrence: None)
  Receive Date: 20050913
  Receipt Date: 20050722
  Transmission Date: 20060218
  Serious: Yes (Death, Hospitalization)
  Sender: FDA-Public Use
  Company Number: IT-AMGEN-UK143660

PATIENT
  Age: 60 Year
  Sex: Male

DRUGS (6)
  1. NEUPOGEN [Suspect]
     Indication: CHEMOTHERAPY
     Route: 058
  2. CARBOPLATIN [Concomitant]
     Route: 065
     Dates: start: 20050506
  3. GEMCITABINE [Concomitant]
     Route: 065
     Dates: start: 20041201, end: 20050301
  4. CISPLATIN [Concomitant]
     Route: 065
     Dates: start: 20041101, end: 20050301
  5. GRANULOCYTE COLONY STIMULATING FACTOR [Concomitant]
     Route: 065
     Dates: start: 20050311
  6. BLOOD, WHOLE [Concomitant]
     Route: 065
     Dates: start: 20050311

REACTIONS (5)
  - ASTHENIA [None]
  - CARDIAC ARREST [None]
  - HYPERGLYCAEMIA [None]
  - LEUKOCYTOSIS [None]
  - TRANSAMINASES INCREASED [None]
